FAERS Safety Report 4340831-X (Version None)
Quarter: 2004Q2

REPORT INFORMATION
  Report Type: 
  Country: None (occurrence: None)
  Receive Date: 20040419
  Receipt Date: 20031118
  Transmission Date: 20050107
  Serious: No
  Sender: FDA-Public Use
  Company Number: US-GLAXOSMITHKLINE-A0440180A

PATIENT
  Age: 46 Year
  Sex: Female

DRUGS (7)
  1. ESKALITH [Suspect]
     Dosage: 450MG TWICE PER DAY
     Route: 048
     Dates: start: 20010101
  2. DILANTIN [Concomitant]
  3. KLONOPIN [Concomitant]
  4. SINEQUAN [Concomitant]
  5. RISPERDAL [Concomitant]
  6. IBUPROFEN [Concomitant]
  7. PREVACID [Concomitant]

REACTIONS (4)
  - ABDOMINAL DISTENSION [None]
  - DIARRHOEA [None]
  - MUSCLE CRAMP [None]
  - RECTAL HAEMORRHAGE [None]
